FAERS Safety Report 7380855-1 (Version None)
Quarter: 2011Q1

REPORT INFORMATION
  Report Type: 
  Country: None (occurrence: None)
  Receive Date: 20110329
  Receipt Date: 20110327
  Transmission Date: 20110831
  Serious: Yes (Other)
  Sender: FDA-Public Use
  Company Number: D0070829A

PATIENT
  Sex: Female

DRUGS (4)
  1. RETROVIR [Suspect]
     Route: 048
  2. VIRAMUNE [Suspect]
     Route: 048
  3. EPIVIR [Suspect]
     Route: 048
  4. TELZIR [Suspect]
     Route: 048

REACTIONS (2)
  - DRUG ABUSE [None]
  - BLOOD CREATINE PHOSPHOKINASE INCREASED [None]
